FAERS Safety Report 5429026-6 (Version None)
Quarter: 2007Q3

REPORT INFORMATION
  Report Type: 
  Country: None (occurrence: None)
  Receive Date: 20070829
  Receipt Date: 20061219
  Transmission Date: 20080115
  Serious: No
  Sender: FDA-Public Use
  Company Number: A0630255A

PATIENT
  Age: 65 Year
  Sex: Female
  Weight: 70.5 kg

DRUGS (5)
  1. MALARONE [Suspect]
     Indication: DRUG USE FOR UNKNOWN INDICATION
     Route: 048
     Dates: start: 20061107, end: 20061121
  2. VYTORIN [Concomitant]
     Route: 048
  3. COZAAR [Concomitant]
     Route: 048
  4. PROTONIX [Concomitant]
  5. FOSAMAX [Concomitant]
     Route: 048

REACTIONS (1)
  - ABNORMAL DREAMS [None]
